FAERS Safety Report 9649500 (Version 1)
Quarter: 2013Q4

REPORT INFORMATION
  Report Type: Spontaneous
  Country: US (occurrence: None)
  Receive Date: 20131010
  Receipt Date: 20131010
  Transmission Date: 20140711
  Serious: Yes (Hospitalization)
  Sender: FDA-Public Use
  Company Number: 2013-01359

PATIENT
  Age: 46 Year
  Sex: Female

DRUGS (11)
  1. LEVETIRACETAM [Suspect]
     Indication: EPILEPSY
     Dosage: 1500 MG, (750 MG, 2 IN 1 D), ORAL
     Route: 048
     Dates: end: 20130719
  2. PHENOBARBITAL [Suspect]
     Indication: EPILEPSY
     Route: 048
     Dates: start: 20130720
  3. TOPIRAMATE [Suspect]
     Indication: EPILEPSY
     Dosage: 300 MG (100 MG, 3 IN 1 D), PER ORAL
     Route: 048
  4. ZOLOFT [Suspect]
     Indication: DEPRESSION
     Route: 048
  5. BUSPIRONE [Suspect]
     Indication: ANXIETY
     Dosage: 10 MG (5 MG, 2 IN 1 D), PER ORAL
     Route: 048
  6. LORAZEPAM [Suspect]
     Indication: CONVULSION
     Route: 048
  7. FAMOTIDINE (PEPCID)(TABLETS) [Concomitant]
  8. CYCLOBENZAPRINE(TABLETS) [Concomitant]
  9. HYDROCODONE/ACETAMINOPHEN(TABLETS) [Concomitant]
  10. TRAZODONE(TABLETS) [Concomitant]
  11. HYDROCHLOROTHIAZIDE (TABLETS) [Concomitant]

REACTIONS (2)
  - Convulsion [None]
  - Suicide attempt [None]
